FAERS Safety Report 4507471-0 (Version None)
Quarter: 2004Q4

REPORT INFORMATION
  Report Type: 
  Country: None (occurrence: None)
  Receive Date: 20041118
  Receipt Date: 20041102
  Transmission Date: 20050328
  Serious: Yes (Hospitalization)
  Sender: FDA-Public Use
  Company Number: 310001L04TUR

PATIENT
  Age: 27 Year
  Sex: Female

DRUGS (4)
  1. RECOMBINANT HUMAN FOLLICLE STIMULATING HORMONE (FOLLITROPIN ALFA) [Suspect]
     Indication: OVULATION INDUCTION
     Dosage: SEE IMAGE
  2. RECOMBINANT HUMAN FOLLICLE STIMULATING HORMONE (FOLLITROPIN ALFA) [Suspect]
     Indication: OVULATION INDUCTION
     Dosage: SEE IMAGE
  3. RECOMBINANT HUMAN FOLLICLE STIMULATING HORMONE (FOLLITROPIN ALFA) [Suspect]
     Indication: OVULATION INDUCTION
     Dosage: SEE IMAGE
  4. HUMAN CHORIONIC GONADOTROPIN (CHLORIONIC GONADOTROPHIN) [Suspect]
     Indication: OVULATION INDUCTION
     Dosage: 10000 IU

REACTIONS (15)
  - ABDOMINAL DISTENSION [None]
  - ASCITES [None]
  - ATAXIA [None]
  - DIFFICULTY IN WALKING [None]
  - DRUG EXPOSURE DURING PREGNANCY [None]
  - HEADACHE [None]
  - HIRSUTISM [None]
  - HORNER'S SYNDROME [None]
  - ISCHAEMIC STROKE [None]
  - NAUSEA [None]
  - OVARIAN CYST [None]
  - OVARIAN HYPERSTIMULATION SYNDROME [None]
  - SOMNOLENCE [None]
  - VERTIGO [None]
  - VOMITING [None]
